FAERS Safety Report 14716834 (Version 10)
Quarter: 2020Q1

REPORT INFORMATION
  Report Type: Spontaneous
  Country: SK (occurrence: SK)
  Receive Date: 20180404
  Receipt Date: 20200128
  Transmission Date: 20200409
  Serious: Yes (Other)
  Sender: FDA-Public Use
  Company Number: SK-MYLANLABS-2018M1021494

PATIENT
  Age: 60 Year
  Sex: Male

DRUGS (15)
  1. ETOPOSIDE. [Suspect]
     Active Substance: ETOPOSIDE
     Dosage: UNK
     Route: 065
  2. PREDNISONE. [Suspect]
     Active Substance: PREDNISONE
     Indication: MANTLE CELL LYMPHOMA
     Dosage: UNK, CYCLE
     Route: 065
     Dates: start: 2012
  3. VINCRISTINE [Suspect]
     Active Substance: VINCRISTINE
     Indication: MANTLE CELL LYMPHOMA RECURRENT
     Dosage: UNK UNK,QCY
     Route: 065
     Dates: start: 2012
  4. PREDNISOLONE. [Concomitant]
     Active Substance: PREDNISOLONE
     Indication: MANTLE CELL LYMPHOMA RECURRENT
  5. VINCRISTINE [Suspect]
     Active Substance: VINCRISTINE
     Indication: MANTLE CELL LYMPHOMA
     Dosage: UNK UNK,QCY
     Route: 065
     Dates: start: 201507, end: 201509
  6. CYCLOPHOSPHAMIDE. [Suspect]
     Active Substance: CYCLOPHOSPHAMIDE
     Indication: MANTLE CELL LYMPHOMA
     Dosage: UNK, CYCLE
     Route: 065
     Dates: start: 201507, end: 201509
  7. RITUXIMAB. [Suspect]
     Active Substance: RITUXIMAB
     Indication: MANTLE CELL LYMPHOMA RECURRENT
     Dosage: QCY
     Route: 065
     Dates: start: 201207
  8. ETOPOSIDE. [Suspect]
     Active Substance: ETOPOSIDE
     Indication: MANTLE CELL LYMPHOMA RECURRENT
     Dosage: UNK, 2 CYCLICAL
     Route: 065
     Dates: start: 20150701, end: 20150901
  9. PREDNISONE. [Suspect]
     Active Substance: PREDNISONE
     Dosage: UNK, CYCLE (2 CYCLES)
     Route: 065
     Dates: start: 201507, end: 201509
  10. PREDNISONE. [Suspect]
     Active Substance: PREDNISONE
     Dosage: UNK
  11. ETOPOSIDE. [Suspect]
     Active Substance: ETOPOSIDE
     Indication: MANTLE CELL LYMPHOMA
     Dosage: UNK, CYCLE, (2 CYCLES)
     Route: 065
     Dates: start: 201507, end: 201509
  12. PREDNISONE. [Suspect]
     Active Substance: PREDNISONE
     Dosage: UNK
     Route: 065
  13. CYCLOPHOSPHAMIDE. [Suspect]
     Active Substance: CYCLOPHOSPHAMIDE
     Indication: MANTLE CELL LYMPHOMA RECURRENT
     Dosage: UNK UNK,QCY
     Route: 065
     Dates: start: 2012
  14. RITUXIMAB. [Suspect]
     Active Substance: RITUXIMAB
     Indication: MANTLE CELL LYMPHOMA
     Dosage: UNK, CYCLE
     Route: 065
     Dates: start: 201507, end: 201509
  15. DOXORUBICIN [Concomitant]
     Active Substance: DOXORUBICIN
     Indication: MANTLE CELL LYMPHOMA RECURRENT
     Dosage: UNK

REACTIONS (8)
  - Palpitations [Unknown]
  - Sinusitis [Unknown]
  - Infection [Unknown]
  - Stomatitis [Unknown]
  - Off label use [Unknown]
  - Constipation [Unknown]
  - Angina pectoris [Unknown]
  - Tonsillitis [Unknown]

NARRATIVE: CASE EVENT DATE: 2015
